FAERS Safety Report 4680008-1 (Version None)
Quarter: 2005Q2

REPORT INFORMATION
  Report Type: 
  Country: None (occurrence: None)
  Receive Date: 20050602
  Receipt Date: 20050601
  Transmission Date: 20051028
  Serious: Yes (Hospitalization)
  Sender: FDA-Public Use
  Company Number: 12976825

PATIENT
  Age: 40 Year
  Sex: Female

DRUGS (11)
  1. NAVELBINE [Suspect]
     Dosage: 20MGM2 CYCLIC
     Route: 042
     Dates: start: 20050426
  2. TAXOL [Suspect]
     Dosage: 50MGM2 CYCLIC
     Route: 042
     Dates: start: 20050426
  3. GCSF [Concomitant]
  4. OXYCODONE HCL [Concomitant]
  5. ATIVAN [Concomitant]
  6. PROCHLORPERAZINE [Concomitant]
  7. MS CONTIN [Concomitant]
  8. ZOFRAN [Concomitant]
  9. DECADRON [Concomitant]
  10. COMPAZINE [Concomitant]
  11. RANITIDINE [Concomitant]

REACTIONS (14)
  - ASTHENIA [None]
  - CHEST PAIN [None]
  - CONSTIPATION [None]
  - DIFFICULTY IN WALKING [None]
  - FAECALOMA [None]
  - HAEMATOCHEZIA [None]
  - HEADACHE [None]
  - NAUSEA [None]
  - NECK PAIN [None]
  - PALPITATIONS [None]
  - TINNITUS [None]
  - URINARY INCONTINENCE [None]
  - VISION BLURRED [None]
  - VOMITING [None]
